FAERS Safety Report 6459900-3 (Version None)
Quarter: 2009Q4

REPORT INFORMATION
  Report Type: 
  Country: None (occurrence: None)
  Receive Date: 20091129
  Receipt Date: 20091116
  Transmission Date: 20100525
  Serious: Yes (Hospitalization, Other)
  Sender: FDA-Public Use
  Company Number: PHEH2009US15036

PATIENT
  Sex: Male

DRUGS (19)
  1. EXJADE [Suspect]
     Indication: SICKLE CELL ANAEMIA
     Dosage: 1500 MG, QD
     Route: 048
     Dates: start: 20051229
  2. EXJADE [Suspect]
     Dosage: 1500MG, QD
     Route: 048
     Dates: start: 20090723
  3. HYDROMORPHONE HCL [Concomitant]
     Indication: PAIN
     Dosage: 4 MG, Q6H PRN
     Route: 048
  4. VICODIN [Concomitant]
     Dosage: Q6H, PRN
     Route: 048
  5. DIPYRIDAMOLE [Concomitant]
     Dosage: 50 MG, QD
     Route: 048
  6. POTASSIUM CHLORIDE [Concomitant]
     Dosage: 20 MEQ, BID
     Route: 048
  7. FOLIC ACID [Concomitant]
     Dosage: 1 MG, QD
     Route: 048
  8. HYDROCHLOROTHIAZIDE [Concomitant]
     Dosage: 25 MG, QD
     Route: 048
  9. ENALAPRIL MALEATE [Concomitant]
     Dosage: 20 MG, QD
     Route: 048
  10. AMMONIUM LACTATE [Concomitant]
     Dosage: BID, PRN
     Route: 061
  11. OSELTAMIVIR [Concomitant]
     Dosage: 75 MG, BID
     Route: 048
  12. PROMETHAZINE [Concomitant]
     Dosage: 50 MG, 3-4 TIMES QD
     Route: 048
  13. ZOLPIDEM [Concomitant]
     Dosage: 10 MG, QPM
     Route: 048
  14. HYDRALAZINE HCL [Concomitant]
     Dosage: 50 MG, TID
     Route: 048
  15. VEETIDS [Concomitant]
     Dosage: 250 MG, BID
     Route: 048
  16. TOPROL-XL [Concomitant]
     Dosage: 50 MG, BID
     Route: 048
  17. PRILOSEC [Concomitant]
     Dosage: 20 MG, BID
     Route: 048
  18. MIRALAX [Concomitant]
     Dosage: UNK
     Route: 048
  19. NORVASC [Concomitant]
     Dosage: 10 MG, QD
     Route: 048

REACTIONS (9)
  - CEREBROVASCULAR ACCIDENT [None]
  - DEEP VEIN THROMBOSIS [None]
  - GASTRITIS [None]
  - GLAUCOMA [None]
  - HAEMOCHROMATOSIS [None]
  - HYPERTENSION [None]
  - INSOMNIA [None]
  - PAIN [None]
  - PANCREATITIS [None]
